FAERS Safety Report 7178271-0 (Version None)
Quarter: 2010Q4

REPORT INFORMATION
  Report Type: 
  Country: None (occurrence: None)
  Receive Date: 20101220
  Receipt Date: 20101214
  Transmission Date: 20110411
  Serious: Yes (Life-Threatening, Hospitalization, Other)
  Sender: FDA-Public Use
  Company Number: FR-PFIZER INC-2009295541

PATIENT
  Age: 37 Year
  Sex: Female

DRUGS (2)
  1. SALAZOPYRIN [Suspect]
     Indication: RHEUMATOID ARTHRITIS
     Dosage: UNK
     Route: 048
     Dates: end: 20090903
  2. ORLISTAT [Concomitant]
     Indication: OVERWEIGHT
     Dosage: UNK
     Route: 048
     Dates: start: 20090601, end: 20090701

REACTIONS (4)
  - CEREBROVASCULAR ACCIDENT [None]
  - CONVULSION [None]
  - HEPATITIS ACUTE [None]
  - INTRAVENTRICULAR HAEMORRHAGE [None]
